FAERS Safety Report 5725740-3 (Version None)
Quarter: 2008Q2

REPORT INFORMATION
  Report Type: 
  Country: None (occurrence: None)
  Receive Date: 20080501
  Receipt Date: 20080428
  Transmission Date: 20081010
  Serious: Yes (Life-Threatening)
  Sender: FDA-Public Use
  Company Number: US-MERCK-0803USA03453

PATIENT
  Age: 44 Year
  Sex: Male

DRUGS (2)
  1. ISENTRESS [Suspect]
     Indication: HIV INFECTION
     Route: 048
     Dates: start: 20080301, end: 20080301
  2. PREZISTA [Concomitant]
     Route: 065

REACTIONS (1)
  - HYPERBILIRUBINAEMIA [None]
